FAERS Safety Report 4762278-4 (Version None)
Quarter: 2005Q3

REPORT INFORMATION
  Report Type: 
  Country: None (occurrence: None)
  Receive Date: 20050907
  Receipt Date: 20050831
  Transmission Date: 20060218
  Serious: Yes (Death, Life-Threatening)
  Sender: FDA-Public Use
  Company Number: FR-BOEHRINGER INGELHEIM PHARMACEUTICALS, INC.-2005-FF-00604FF

PATIENT
  Age: 71 Year
  Sex: Male
  Weight: 75 kg

DRUGS (8)
  1. MICARDIS [Suspect]
     Indication: HYPERTENSION
     Route: 048
     Dates: start: 20050426, end: 20050808
  2. DEXAMETHASONE [Concomitant]
     Indication: BLOOD DISORDER
     Route: 048
     Dates: start: 20050401, end: 20050808
  3. FUROSEMIDE [Concomitant]
     Indication: ESSENTIAL HYPERTENSION
     Route: 048
     Dates: start: 20050726, end: 20050808
  4. THALIDOMIDE [Concomitant]
     Indication: BLOOD DISORDER
     Route: 048
     Dates: start: 20050401, end: 20050808
  5. ARANESP [Concomitant]
     Indication: ANAEMIA
     Route: 058
     Dates: start: 20041215, end: 20050808
  6. CORDARONE [Concomitant]
     Indication: ARRHYTHMIA
     Route: 048
     Dates: start: 20050426, end: 20050808
  7. COMBIVENT [Concomitant]
     Route: 055
  8. SERETIDE [Concomitant]
     Route: 055

REACTIONS (1)
  - ARRHYTHMIA [None]
